FAERS Safety Report 8103017-9 (Version None)
Quarter: 2012Q1

REPORT INFORMATION
  Report Type: 
  Country: None (occurrence: None)
  Receive Date: 20120201
  Receipt Date: 20120201
  Transmission Date: 20120608
  Serious: Yes (Other)
  Sender: FDA-Public Use
  Company Number: None

PATIENT
  Sex: Male
  Weight: 150.59 kg

DRUGS (16)
  1. FENOFIBRATE [Concomitant]
     Route: 048
  2. LISINOPRIL [Concomitant]
     Route: 048
  3. MULTI-VITAMIN [Concomitant]
     Route: 048
  4. POTASSIUM CHLORIDE ER [Concomitant]
     Route: 048
  5. GLIMEPIRIDE [Concomitant]
     Route: 048
  6. OXYBUTYNIN [Concomitant]
     Route: 048
  7. TADALAFIL [Concomitant]
  8. SITAGLIPTIN/METFORMIN 50MG/1000MG [Concomitant]
     Route: 048
  9. SITAGLIPTIN/METFORMIN 50MG/500MG [Concomitant]
     Route: 048
  10. IMIPRAMINE [Concomitant]
     Route: 048
  11. FISH OIL [Concomitant]
     Route: 048
  12. SULFAMETHOXAZOLE AND TRIMETHOPRIM [Suspect]
     Indication: URINARY TRACT INFECTION
     Dosage: 1 TABLET
     Route: 048
     Dates: start: 20120129, end: 20120130
  13. ASCORBIC ACID [Concomitant]
     Route: 048
  14. TAMSULOSIN HCL [Concomitant]
     Route: 048
  15. ASPIRIN [Concomitant]
     Route: 048
  16. TRIAMCINOLONE ACETONIDE 0.1% OINTMENT [Concomitant]
     Route: 061

REACTIONS (2)
  - RASH [None]
  - NO REACTION ON PREVIOUS EXPOSURE TO DRUG [None]
